FAERS Safety Report 9886916 (Version 3)
Quarter: 2014Q1

REPORT INFORMATION
  Report Type: Report from Study
  Country: CA (occurrence: CA)
  Receive Date: 20140210
  Receipt Date: 20140220
  Transmission Date: 20141002
  Serious: Yes (Other)
  Sender: FDA-Public Use
  Company Number: CA-ROCHE-1247360

PATIENT
  Sex: Female

DRUGS (5)
  1. RITUXAN [Suspect]
     Indication: IMMUNE THROMBOCYTOPENIC PURPURA
     Dosage: WEEKLY
     Route: 042
     Dates: start: 20101206
  2. RITUXAN [Suspect]
     Dosage: WEEKLY
     Route: 042
     Dates: start: 20120612, end: 201308
  3. RAMIPRIL [Suspect]
     Indication: PRODUCT USED FOR UNKNOWN INDICATION
     Route: 048
     Dates: end: 20131212
  4. DEXAMETHASONE [Concomitant]
  5. RAMIPRIL [Concomitant]

REACTIONS (6)
  - Tonsillitis [Unknown]
  - Immune thrombocytopenic purpura [Not Recovered/Not Resolved]
  - Platelet count increased [Unknown]
  - Cough [Unknown]
  - Off label use [Unknown]
  - No therapeutic response [Unknown]
